FAERS Safety Report 23054278 (Version 4)
Quarter: 2025Q1

REPORT INFORMATION
  Report Type: Spontaneous
  Country: US (occurrence: US)
  Receive Date: 20231011
  Receipt Date: 20250326
  Transmission Date: 20250409
  Serious: Yes (Other)
  Sender: SANOFI AVENTIS
  Company Number: US-SA-SAC20231009000673

PATIENT
  Age: 35 Year
  Sex: Female

DRUGS (1)
  1. DUPIXENT [Suspect]
     Active Substance: DUPILUMAB
     Indication: Eosinophilic oesophagitis
     Dosage: 300 MG, QW
     Route: 058

REACTIONS (8)
  - Choking [Unknown]
  - Odynophagia [Unknown]
  - Peripheral swelling [Unknown]
  - Condition aggravated [Unknown]
  - Eosinophilic oesophagitis [Unknown]
  - Injection site pain [Unknown]
  - Hypersensitivity [Unknown]
  - Throat irritation [Unknown]

NARRATIVE: CASE EVENT DATE: 20240103
